FAERS Safety Report 4866318-3 (Version None)
Quarter: 2005Q4

REPORT INFORMATION
  Report Type: 
  Country: None (occurrence: None)
  Receive Date: 20051227
  Receipt Date: 20051219
  Transmission Date: 20060501
  Serious: Yes (Other)
  Sender: FDA-Public Use
  Company Number: PHEH2005US13649

PATIENT
  Age: 41 Year
  Sex: Male

DRUGS (12)
  1. PROGRAF [Suspect]
     Indication: RENAL TRANSPLANT
     Dosage: 4 MG, QD
     Route: 048
     Dates: start: 20030101, end: 20050901
  2. PROGRAF [Suspect]
     Dosage: 3 MG, QD
     Route: 048
     Dates: start: 20050901
  3. RAPAMUNE [Concomitant]
     Dosage: 2 MG, QD
  4. NORVASC [Concomitant]
     Dosage: 20 MG, QD
  5. TOPROL-XL [Concomitant]
  6. ZETIA [Concomitant]
     Dosage: 10 MG, UNK
  7. HECTOROL [Concomitant]
  8. CENTRUM [Concomitant]
  9. AMBIEN [Concomitant]
     Dosage: 5 MG, UNK
  10. LEXAPRO [Concomitant]
  11. ZYRTEC [Concomitant]
  12. MYFORTIC [Suspect]
     Indication: RENAL TRANSPLANT
     Dosage: 360 MG, BID
     Route: 048
     Dates: start: 20050901, end: 20051001

REACTIONS (1)
  - DERMAL CYST [None]
